FAERS Safety Report 21639602 (Version 2)
Quarter: 2022Q4

REPORT INFORMATION
  Report Type: Spontaneous
  Country: US (occurrence: US)
  Receive Date: 20221124
  Receipt Date: 20221213
  Transmission Date: 20230113
  Serious: No
  Sender: FDA-Public Use
  Company Number: US-SA-SAC20221122001330

PATIENT
  Age: 38 Year
  Sex: Female

DRUGS (1)
  1. NEXVIAZYME [Suspect]
     Active Substance: AVALGLUCOSIDASE ALFA-NGPT
     Dosage: UNK

REACTIONS (2)
  - Tryptase increased [Recovering/Resolving]
  - Glucose urine present [Recovering/Resolving]

NARRATIVE: CASE EVENT DATE: 20201019
